FAERS Safety Report 21648710 (Version 1)
Quarter: 2022Q4

REPORT INFORMATION
  Report Type: Spontaneous
  Country: US (occurrence: None)
  Receive Date: 20221123
  Receipt Date: 20221123
  Transmission Date: 20230113
  Serious: Yes (Hospitalization)
  Sender: FDA-Public Use
  Company Number: None

PATIENT
  Age: 81 Year
  Sex: Male
  Weight: 137.89 kg

DRUGS (3)
  1. BENDAMUSTINE HYDROCHLORIDE [Suspect]
     Active Substance: BENDAMUSTINE HYDROCHLORIDE
     Dates: end: 20140910
  2. LENALIDOMIDE [Suspect]
     Active Substance: LENALIDOMIDE
     Dates: end: 20160925
  3. RITUXIMAB [Suspect]
     Active Substance: RITUXIMAB
     Dates: end: 20160727

REACTIONS (2)
  - Anaemia macrocytic [None]
  - Acute myeloid leukaemia [None]

NARRATIVE: CASE EVENT DATE: 20220729
